FAERS Safety Report 8248678-9 (Version None)
Quarter: 2012Q1

REPORT INFORMATION
  Report Type: 
  Country: None (occurrence: None)
  Receive Date: 20120331
  Receipt Date: 20120323
  Transmission Date: 20120608
  Serious: Yes (Hospitalization, Other)
  Sender: FDA-Public Use
  Company Number: US-AMGEN-USASP2012018974

PATIENT
  Age: 59 Year
  Sex: Male

DRUGS (9)
  1. ESOMEPRAZOLE [Concomitant]
     Dosage: UNK
  2. SIMVASTATIN [Concomitant]
     Dosage: UNK
  3. CHOLECALCIFEROL [Concomitant]
     Dosage: UNK
  4. MAGNESIUM GLUCONATE [Concomitant]
     Dosage: UNK
  5. ENBREL [Suspect]
     Indication: RHEUMATOID ARTHRITIS
     Dosage: 50 MG, QWK
     Dates: start: 20080101, end: 20120101
  6. ASPIRIN [Concomitant]
     Dosage: UNK
  7. OXYCODONE HCL [Concomitant]
     Dosage: UNK
  8. TAMSULOSIN HCL [Concomitant]
     Dosage: UNK
  9. DUTASTERIDE [Concomitant]
     Dosage: UNK

REACTIONS (8)
  - PANCYTOPENIA [None]
  - DYSPNOEA EXERTIONAL [None]
  - LYMPHOMA [None]
  - HIATUS HERNIA [None]
  - LUNG NEOPLASM [None]
  - NIGHT SWEATS [None]
  - SPLENIC INFARCTION [None]
  - UMBILICAL HERNIA [None]
